FAERS Safety Report 6818769-5 (Version None)
Quarter: 2010Q2

REPORT INFORMATION
  Report Type: 
  Country: None (occurrence: None)
  Receive Date: 20100630
  Receipt Date: 20100612
  Transmission Date: 20101027
  Serious: Yes (Death)
  Sender: FDA-Public Use
  Company Number: US-JNJFOC-20100606854

PATIENT
  Age: 70 Year
  Sex: Male

DRUGS (1)
  1. DACOGEN [Suspect]
     Indication: DRUG USE FOR UNKNOWN INDICATION
     Dosage: 1 CYCLE INTRAVENOUS
     Route: 042

REACTIONS (1)
  - DEATH [None]
